FAERS Safety Report 4529577-2 (Version None)
Quarter: 2004Q4

REPORT INFORMATION
  Report Type: 
  Country: None (occurrence: None)
  Receive Date: 20041202
  Receipt Date: 20040921
  Transmission Date: 20050328
  Serious: No
  Sender: FDA-Public Use
  Company Number: 200420681BWH

PATIENT
  Age: 58 Year
  Sex: Male

DRUGS (8)
  1. LEVITRA [Suspect]
     Indication: ERECTILE DYSFUNCTION
     Dosage: 5 MG, BIW, ORAL
     Route: 048
     Dates: start: 20040401
  2. SIMVASTATIN [Concomitant]
  3. NIACIN [Concomitant]
  4. AVODART [Concomitant]
  5. RANITIDINE [Concomitant]
  6. LISINOPRIL [Concomitant]
  7. FLOMAX [Concomitant]
  8. ASPIRIN [Concomitant]

REACTIONS (1)
  - DIARRHOEA [None]
